FAERS Safety Report 6900377-9 (Version None)
Quarter: 2010Q3

REPORT INFORMATION
  Report Type: 
  Country: None (occurrence: None)
  Receive Date: 20100803
  Receipt Date: 20100723
  Transmission Date: 20110219
  Serious: Yes (Death)
  Sender: FDA-Public Use
  Company Number: PHHY2010JP47870

PATIENT
  Sex: Female
  Weight: 42 kg

DRUGS (5)
  1. DIOVAN [Suspect]
     Indication: HYPERTENSION
     Dosage: 120 MG, BID
     Route: 048
     Dates: start: 20080717, end: 20081204
  2. DIOVAN [Suspect]
     Dosage: 160 MG, BID
     Route: 048
     Dates: start: 20081205
  3. FLUVASTATIN [Concomitant]
     Dosage: 20 MG
     Route: 048
     Dates: start: 20080124
  4. NITRODERM [Concomitant]
     Dosage: 25 MG
     Route: 062
     Dates: start: 20061008
  5. AMLODIPINE BESYLATE [Concomitant]
     Indication: HYPERTENSION
     Dosage: 5 MG, 10 MG AND 5 MG
     Route: 048
     Dates: start: 20080124

REACTIONS (1)
  - DEATH [None]
